FAERS Safety Report 11168435 (Version 1)
Quarter: 2015Q2

REPORT INFORMATION
  Report Type: Spontaneous
  Country: IT (occurrence: IT)
  Receive Date: 20150605
  Receipt Date: 20150605
  Transmission Date: 20150821
  Serious: Yes (Other)
  Sender: FDA-Public Use
  Company Number: IT-GLAXOSMITHKLINE CONSUMER HEALTHCARE INC.-B0835211A

PATIENT
  Age: 10 Year
  Sex: Female

DRUGS (10)
  1. TETRACYCLINE [Suspect]
     Active Substance: TETRACYCLINE
     Dosage: UNK
     Route: 048
  2. METRONIDAZOLE. [Suspect]
     Active Substance: METRONIDAZOLE
     Dosage: UNK
     Route: 061
  3. RITUXIMAB [Concomitant]
     Active Substance: RITUXIMAB
     Indication: EPSTEIN-BARR VIRUS INFECTION
     Dosage: 375 MG/M2, WE
  4. ISOTRETINOIN [Suspect]
     Active Substance: ISOTRETINOIN
     Indication: ROSACEA
     Dosage: 0.5 MG/KG, BID
  5. ACYCLOVIR. [Suspect]
     Active Substance: ACYCLOVIR
     Indication: HERPES VIRUS INFECTION
  6. METRONIDAZOLE. [Suspect]
     Active Substance: METRONIDAZOLE
     Indication: ROSACEA
     Route: 048
  7. PIMECROLIMUS [Suspect]
     Active Substance: PIMECROLIMUS
     Indication: ROSACEA
     Route: 061
  8. TETRACYCLINE [Suspect]
     Active Substance: TETRACYCLINE
     Indication: ROSACEA
     Route: 061
  9. MUPIROCIN. [Suspect]
     Active Substance: MUPIROCIN
     Indication: ROSACEA
  10. CLINDAMYCIN [Suspect]
     Active Substance: CLINDAMYCIN\CLINDAMYCIN PHOSPHATE
     Indication: ROSACEA
     Route: 061

REACTIONS (6)
  - Hypertransaminasaemia [Unknown]
  - Cartilage injury [Unknown]
  - Skin lesion [Unknown]
  - Drug-induced liver injury [Unknown]
  - Scar [Unknown]
  - Multiple-drug resistance [Unknown]
